FAERS Safety Report 16946092 (Version 3)
Quarter: 2019Q4

REPORT INFORMATION
  Report Type: Spontaneous
  Country: US (occurrence: US)
  Receive Date: 20191022
  Receipt Date: 20191205
  Transmission Date: 20200122
  Serious: Yes (Hospitalization, Other)
  Sender: FDA-Public Use
  Company Number: US-PFIZER INC-2019387547

PATIENT
  Age: 90 Year
  Sex: Female
  Weight: 66.22 kg

DRUGS (3)
  1. LETROZOLE. [Concomitant]
     Active Substance: LETROZOLE
     Indication: BREAST CANCER METASTATIC
     Dosage: 2.5 MG, 1X/DAY
     Dates: start: 201901
  2. IBRANCE [Suspect]
     Active Substance: PALBOCICLIB
     Indication: BREAST CANCER METASTATIC
     Dosage: 125 MG, CYCLIC ONCE A DAY FOR 21 DAYS
     Route: 048
     Dates: start: 20190328
  3. FEMARA [Concomitant]
     Active Substance: LETROZOLE
     Indication: BREAST CANCER METASTATIC
     Dosage: 2.5 MG, 1X/DAY
     Dates: start: 201901

REACTIONS (4)
  - Skin exfoliation [Not Recovered/Not Resolved]
  - Neutrophil count decreased [Unknown]
  - Neoplasm progression [Unknown]
  - Leukopenia [Unknown]

NARRATIVE: CASE EVENT DATE: 201907
